FAERS Safety Report 4970826-4 (Version None)
Quarter: 2006Q1

REPORT INFORMATION
  Report Type: 
  Country: None (occurrence: None)
  Receive Date: 20060207
  Receipt Date: 20051115
  Transmission Date: 20060701
  Serious: Yes (Other)
  Sender: FDA-Public Use
  Company Number: AND_0246_2005

PATIENT
  Age: 56 Year
  Sex: Female
  Weight: 97.5234 kg

DRUGS (1)
  1. TAZTIA XT [Suspect]
     Indication: HYPERTENSION
     Dosage: 180 MG QDAY PO
     Route: 048
     Dates: start: 20051020, end: 20051021

REACTIONS (7)
  - BLOOD PRESSURE INCREASED [None]
  - CHEST PAIN [None]
  - GINGIVAL PAIN [None]
  - HEADACHE [None]
  - PAIN IN EXTREMITY [None]
  - PHARMACEUTICAL PRODUCT COMPLAINT [None]
  - VASODILATATION [None]
